FAERS Safety Report 25527001 (Version 2)
Quarter: 2025Q4

REPORT INFORMATION
  Report Type: Report from Study
  Country: BR (occurrence: BR)
  Receive Date: 20250708
  Receipt Date: 20251224
  Transmission Date: 20260118
  Serious: Yes (Other)
  Sender: JOHNSON AND JOHNSON
  Company Number: BR-JNJFOC-20250226488

PATIENT
  Age: 53 Year
  Sex: Female
  Weight: 57 kg

DRUGS (10)
  1. GOLIMUMAB [Suspect]
     Active Substance: GOLIMUMAB
     Indication: Rheumatoid arthritis
     Route: 058
  2. GOLIMUMAB [Suspect]
     Active Substance: GOLIMUMAB
  3. GOLIMUMAB [Suspect]
     Active Substance: GOLIMUMAB
  4. SIMPONI [Suspect]
     Active Substance: GOLIMUMAB
     Indication: Rheumatoid arthritis
     Route: 058
  5. SIMPONI [Suspect]
     Active Substance: GOLIMUMAB
  6. SERTRALINE [Suspect]
     Active Substance: SERTRALINE HYDROCHLORIDE
  7. Amitritilina [Concomitant]
     Indication: Product used for unknown indication
  8. HALDOL [Concomitant]
     Active Substance: HALOPERIDOL
     Indication: Product used for unknown indication
  9. LITHIUM [Concomitant]
     Active Substance: LITHIUM
     Indication: Sleep disorder
  10. ACETAMINOPHEN\CODEINE PHOSPHATE [Concomitant]
     Active Substance: ACETAMINOPHEN\CODEINE PHOSPHATE
     Indication: Sleep disorder

REACTIONS (16)
  - Rheumatoid arthritis [Unknown]
  - Osteomyelitis [Unknown]
  - Influenza [Recovered/Resolved]
  - Osteopenia [Unknown]
  - Nausea [Recovered/Resolved]
  - Skin disorder [Unknown]
  - Memory impairment [Unknown]
  - Hypertension [Unknown]
  - Diarrhoea [Unknown]
  - Thirst [Unknown]
  - Weight decreased [Unknown]
  - Dental caries [Not Recovered/Not Resolved]
  - Dry skin [Unknown]
  - Alopecia [Unknown]
  - Pruritus [Recovered/Resolved]
  - Eye disorder [Unknown]

NARRATIVE: CASE EVENT DATE: 20250401
